FAERS Safety Report 6746188-9 (Version None)
Quarter: 2010Q2

REPORT INFORMATION
  Report Type: 
  Country: None (occurrence: None)
  Receive Date: 20100528
  Receipt Date: 20090908
  Transmission Date: 20101027
  Serious: No
  Sender: FDA-Public Use
  Company Number: US-ASTRAZENECA-2009SE12043

PATIENT
  Sex: Male

DRUGS (3)
  1. PRILOSEC [Suspect]
     Indication: GASTROOESOPHAGEAL REFLUX DISEASE
     Route: 048
     Dates: start: 19990101, end: 20010101
  2. PRILOSEC [Suspect]
     Route: 048
     Dates: start: 20010101
  3. PRILOSEC [Suspect]
     Route: 048

REACTIONS (5)
  - ABDOMINAL PAIN UPPER [None]
  - BREATH ODOUR [None]
  - CHOKING [None]
  - DRUG INEFFECTIVE [None]
  - DYSPHAGIA [None]
